FAERS Safety Report 22211436 (Version 6)
Quarter: 2023Q2

REPORT INFORMATION
  Report Type: Spontaneous
  Country: CA (occurrence: CA)
  Receive Date: 20230414
  Receipt Date: 20230616
  Transmission Date: 20230721
  Serious: Yes (Other)
  Sender: FDA-Public Use
  Company Number: CA-CELLTRION INC.-2023CA007623

PATIENT

DRUGS (9)
  1. INFLECTRA [Suspect]
     Active Substance: INFLIXIMAB-DYYB
     Indication: Crohn^s disease
     Dosage: 500 MG, Q 0, 2, 6 WEEKS THEN EVERY 8 WEEKS
     Route: 042
     Dates: start: 20230302, end: 20230316
  2. INFLECTRA [Suspect]
     Active Substance: INFLIXIMAB-DYYB
     Dosage: 500 MG, Q 0, 2, 6 WEEKS THEN EVERY 8 WEEKS
     Route: 042
     Dates: start: 20230316
  3. INFLECTRA [Suspect]
     Active Substance: INFLIXIMAB-DYYB
     Dosage: 900 MG (10 MG/KG, Q 6, THEN EVERY 8 WEEKS)
     Route: 042
     Dates: start: 20230418
  4. AMOXICILLIN [Concomitant]
     Active Substance: AMOXICILLIN
     Dosage: 1 DF
     Dates: start: 20230324, end: 20230402
  5. BUDESONIDE [Concomitant]
     Active Substance: BUDESONIDE
     Dosage: 3MG TAPER
  6. ENTOCORT [Concomitant]
     Active Substance: BUDESONIDE
     Dosage: 1 DF
  7. PREDNISONE [Concomitant]
     Active Substance: PREDNISONE
     Indication: Pain
     Dosage: 1 DF
  8. PREDNISONE [Concomitant]
     Active Substance: PREDNISONE
     Indication: Defaecation urgency
     Dosage: 20MG TAPER DOSE (WEAN 5MG WEEKLY)
     Dates: start: 20230411
  9. PREDNISONE [Concomitant]
     Active Substance: PREDNISONE
     Indication: Frequent bowel movements

REACTIONS (22)
  - Immunodeficiency [Not Recovered/Not Resolved]
  - Clostridium difficile infection [Unknown]
  - Drug ineffective [Unknown]
  - Pharyngitis streptococcal [Unknown]
  - Oropharyngeal pain [Recovering/Resolving]
  - Dry throat [Recovering/Resolving]
  - Cough [Recovering/Resolving]
  - Constipation [Not Recovered/Not Resolved]
  - Sleep disorder due to general medical condition, insomnia type [Unknown]
  - Diarrhoea [Recovering/Resolving]
  - Frequent bowel movements [Unknown]
  - Pollakiuria [Unknown]
  - Malaise [Unknown]
  - Defaecation urgency [Unknown]
  - Proctalgia [Unknown]
  - Nausea [Recovered/Resolved]
  - Fatigue [Unknown]
  - Nasopharyngitis [Unknown]
  - Rectal tenesmus [Unknown]
  - Chromaturia [Unknown]
  - Abdominal pain [Recovering/Resolving]
  - Arthralgia [Unknown]

NARRATIVE: CASE EVENT DATE: 20230101
